FAERS Safety Report 24151668 (Version 1)
Quarter: 2024Q3

REPORT INFORMATION
  Report Type: Spontaneous
  Country: SE (occurrence: SE)
  Receive Date: 20240730
  Receipt Date: 20240730
  Transmission Date: 20241016
  Serious: Yes (Other)
  Sender: DR REDDYS
  Company Number: SE-GERMAN-LIT/SWE/24/0011042

PATIENT

DRUGS (1)
  1. DAPTOMYCIN [Suspect]
     Active Substance: DAPTOMYCIN
     Indication: Vascular graft infection

REACTIONS (2)
  - Eosinophilic pneumonia [Unknown]
  - Product use in unapproved indication [Unknown]
